FAERS Safety Report 24189415 (Version 1)
Quarter: 2024Q3

REPORT INFORMATION
  Report Type: Spontaneous
  Country: US (occurrence: None)
  Receive Date: 20240807
  Receipt Date: 20240807
  Transmission Date: 20241017
  Serious: Yes (unspecified)
  Sender: Public
  Company Number: None

PATIENT
  Age: 48 Year
  Sex: Female
  Weight: 69.75 kg

DRUGS (6)
  1. XIIDRA [Suspect]
     Active Substance: LIFITEGRAST
     Indication: Sjogren^s syndrome
     Dosage: FREQUENCY : TWICE A DAY;?
     Route: 047
     Dates: start: 20130801, end: 20240601
  2. LEVOTHYROXINE [Concomitant]
  3. Valsartin [Concomitant]
  4. CEQUA [Concomitant]
     Active Substance: CYCLOSPORINE
  5. Vitamin D [Concomitant]
  6. COLLAGEN [Concomitant]

REACTIONS (5)
  - Instillation site swelling [None]
  - Instillation site pruritus [None]
  - Instillation site inflammation [None]
  - Dermatitis contact [None]
  - Therapy cessation [None]

NARRATIVE: CASE EVENT DATE: 20230401
